FAERS Safety Report 19504198 (Version 1)
Quarter: 2021Q3

REPORT INFORMATION
  Report Type: Report from Study
  Country: AT (occurrence: AT)
  Receive Date: 20210707
  Receipt Date: 20210707
  Transmission Date: 20211014
  Serious: Yes (Hospitalization)
  Sender: FDA-Public Use
  Company Number: AT-PFIZER INC-2021815066

PATIENT
  Age: 41 Year
  Sex: Female

DRUGS (9)
  1. SKINOREN [Concomitant]
     Active Substance: AZELAIC ACID
     Indication: RASH
     Dosage: AZELAINSAEURE, CREME
     Dates: start: 201902, end: 201903
  2. PANTOLOC [PANTOPRAZOLE] [Concomitant]
     Active Substance: PANTOPRAZOLE SODIUM
     Indication: DYSPEPSIA
     Dosage: 20 MG
     Dates: start: 201902
  3. THOMAPYRIN [ACETYLSALICYLIC ACID;CAFFEINE;PARACETAMOL] [Concomitant]
     Active Substance: ACETAMINOPHEN\ASPIRIN\CAFFEINE
     Indication: PAIN IN EXTREMITY
     Dosage: UNK
     Dates: start: 201905, end: 201905
  4. PARKEMED [Concomitant]
     Active Substance: MEFENAMIC ACID
     Indication: PAIN IN EXTREMITY
     Dosage: UNK
     Dates: start: 201905, end: 201905
  5. DALACIN [Concomitant]
     Active Substance: CLINDAMYCIN
     Indication: RASH
     Dosage: LOTION
     Dates: start: 201902, end: 201903
  6. EUTHYROX [Concomitant]
     Active Substance: LEVOTHYROXINE SODIUM
     Indication: HYPOTHYROIDISM
     Dosage: UNK
     Dates: start: 201906
  7. SUTENT [Suspect]
     Active Substance: SUNITINIB MALATE
     Dosage: 37.5 MG, ONCE DAILY
     Dates: start: 201907
  8. UREA. [Concomitant]
     Active Substance: UREA
     Indication: ILL-DEFINED DISORDER
     Dosage: KERATOSIS CREME WIDMER: CARBAMIDUM
     Dates: start: 201904
  9. TRETINOIN. [Concomitant]
     Active Substance: TRETINOIN
     Indication: ILL-DEFINED DISORDER
     Dosage: UNK
     Dates: start: 201904

REACTIONS (1)
  - Heavy menstrual bleeding [Recovering/Resolving]

NARRATIVE: CASE EVENT DATE: 20190803
